FAERS Safety Report 16356475 (Version 1)
Quarter: 2019Q2

REPORT INFORMATION
  Report Type: Spontaneous
  Country: HK (occurrence: HK)
  Receive Date: 20190527
  Receipt Date: 20190527
  Transmission Date: 20190711
  Serious: Yes (Hospitalization, Other)
  Sender: FDA-Public Use
  Company Number: HK-MICRO LABS LIMITED-ML2019-01314

PATIENT
  Age: 69 Year
  Sex: Male

DRUGS (15)
  1. LANTUS SOLOSTAR [Concomitant]
     Active Substance: INSULIN GLARGINE
     Dosage: 8 UNITS NOCTE
  2. CALCIUM [Concomitant]
     Active Substance: CALCIUM
  3. LINAGLIPTIN [Interacting]
     Active Substance: LINAGLIPTIN
     Dates: start: 201709
  4. STEVIA REBAUDIANA [Interacting]
     Active Substance: HERBALS\STEVIA REBAUDIUNA LEAF
     Dosage: (FOR 2 TO 3 MONTHS)
  5. VITAMIN B COMPLEX [Concomitant]
     Active Substance: CYANOCOBALAMIN\DEXPANTHENOL\NIACINAMIDE\PYRIDOXINE HYDROCHLORIDE\RIBOFLAVIN 5^-PHOSPHATE SODIUM\THIAMINE HYDROCHLORIDE\VITAMIN B COMPLEX
  6. SIMVASTATIN. [Suspect]
     Active Substance: SIMVASTATIN
     Dosage: 40 MG NOCTE (COMMENCED SINCE OCTOBER 2008)
     Dates: start: 200810
  7. MAGNESIUM [Concomitant]
     Active Substance: MAGNESIUM
  8. METFORMIN [Concomitant]
     Active Substance: METFORMIN HYDROCHLORIDE
  9. TERAZOSIN [Concomitant]
     Active Substance: TERAZOSIN\TERAZOSIN HYDROCHLORIDE
     Dosage: 1 MG NOCTE
  10. PARACETAMOL [Concomitant]
     Active Substance: ACETAMINOPHEN
     Indication: MYALGIA
  11. LOSARTAN. [Concomitant]
     Active Substance: LOSARTAN
  12. ZINC. [Concomitant]
     Active Substance: ZINC
  13. COENZYME Q10 [Concomitant]
     Active Substance: UBIDECARENONE
  14. FRUCTUS SWIETENIA MACROPHYLLA [Concomitant]
     Dosage: (FOR 3 TO 4 MONTHS)
  15. GYNURA DIVARICATA [Concomitant]
     Dosage: (FOR 1 YEAR)

REACTIONS (4)
  - Rhabdomyolysis [Recovered/Resolved]
  - Drug interaction [Recovered/Resolved]
  - Herbal interaction [Recovered/Resolved]
  - Myopathy [Recovered/Resolved]
